FAERS Safety Report 10547822 (Version 1)
Quarter: 2014Q4

REPORT INFORMATION
  Report Type: Spontaneous
  Country: US (occurrence: None)
  Receive Date: 20141027
  Receipt Date: 20141027
  Transmission Date: 20150529
  Serious: Yes (Hospitalization)
  Sender: FDA-Public Use
  Company Number: None

PATIENT
  Age: 68 Year
  Sex: Male
  Weight: 113.6 kg

DRUGS (1)
  1. TRAMADOL [Suspect]
     Active Substance: TRAMADOL
     Indication: PAIN
     Dosage: 50-100 MG OTHER PO
     Route: 048
     Dates: start: 20140809, end: 20140923

REACTIONS (5)
  - Alcohol withdrawal syndrome [None]
  - Blood pressure increased [None]
  - Intentional overdose [None]
  - Dyspnoea [None]
  - Tachycardia [None]

NARRATIVE: CASE EVENT DATE: 20141007
